FAERS Safety Report 8072712-2 (Version None)
Quarter: 2012Q1

REPORT INFORMATION
  Report Type: 
  Country: None (occurrence: None)
  Receive Date: 20120126
  Receipt Date: 20120123
  Transmission Date: 20120608
  Serious: Yes (Death, Hospitalization, Other)
  Sender: FDA-Public Use
  Company Number: US-PFIZER INC-2011151582

PATIENT
  Sex: Female

DRUGS (3)
  1. FENTANYL [Concomitant]
     Indication: PAIN
     Dosage: 100 UG, UNK
     Dates: start: 20081201, end: 20091001
  2. RISPERIDONE [Concomitant]
     Indication: DEPRESSION
     Dosage: 1 MG, UNK
     Dates: start: 20090717, end: 20091001
  3. CHANTIX [Suspect]
     Indication: SMOKING CESSATION THERAPY
     Dosage: STARTING PACK
     Route: 048
     Dates: start: 20090901, end: 20100122

REACTIONS (5)
  - WEIGHT DECREASED [None]
  - COMPLETED SUICIDE [None]
  - DEPRESSION [None]
  - INSOMNIA [None]
  - FATIGUE [None]
